FAERS Safety Report 15918959 (Version 7)
Quarter: 2019Q4

REPORT INFORMATION
  Report Type: Spontaneous
  Country: JP (occurrence: JP)
  Receive Date: 20190205
  Receipt Date: 20191126
  Transmission Date: 20200122
  Serious: Yes (Life-Threatening, Other)
  Sender: FDA-Public Use
  Company Number: JP-ASTELLAS-2019JP000427

PATIENT
  Age: 58 Year
  Sex: Female

DRUGS (8)
  1. XOSPATA [Suspect]
     Active Substance: GILTERITINIB
     Indication: ACUTE MYELOID LEUKAEMIA
     Route: 048
     Dates: start: 20190111, end: 20190128
  2. CYLOCIDE-N [Concomitant]
     Indication: ACUTE MYELOID LEUKAEMIA
     Dosage: UNK, UNK, UNK
     Route: 065
     Dates: start: 2018
  3. XOSPATA [Suspect]
     Active Substance: GILTERITINIB
     Dosage: 40 MG UNK, UNKNOWN FREQ.
     Route: 065
     Dates: start: 20190130, end: 20190131
  4. VORICONAZOLE. [Concomitant]
     Active Substance: VORICONAZOLE
     Indication: PRODUCT USED FOR UNKNOWN INDICATION
     Dosage: UNK UNK, UNKNOWN FREQ.
     Route: 065
  5. XOSPATA [Suspect]
     Active Substance: GILTERITINIB
     Route: 048
     Dates: start: 20190222, end: 20190225
  6. CYLOCIDE-N [Concomitant]
     Route: 065
  7. DAUNORUBICIN HYDROCHLORIDE. [Concomitant]
     Active Substance: DAUNORUBICIN HYDROCHLORIDE
     Indication: ACUTE MYELOID LEUKAEMIA
     Route: 065
  8. CYLOCIDE-N [Concomitant]
     Dosage: 1 G/M2, TWICE DAILY
     Route: 065
     Dates: start: 20190102, end: 20190106

REACTIONS (9)
  - Cerebral haemorrhage [Recovered/Resolved]
  - Platelet count decreased [Unknown]
  - Product use issue [Unknown]
  - Alanine aminotransferase increased [Unknown]
  - Aspergillus infection [Recovered/Resolved]
  - Aspartate aminotransferase increased [Unknown]
  - Blood alkaline phosphatase increased [Unknown]
  - Gamma-glutamyltransferase increased [Unknown]
  - Pyrexia [Recovered/Resolved]

NARRATIVE: CASE EVENT DATE: 20190117
